FAERS Safety Report 5646776-7 (Version None)
Quarter: 2008Q1

REPORT INFORMATION
  Report Type: 
  Country: None (occurrence: None)
  Receive Date: 20080303
  Receipt Date: 20080221
  Transmission Date: 20080703
  Serious: Yes (Other)
  Sender: FDA-Public Use
  Company Number: FR-WYE-G01110408

PATIENT
  Sex: Female

DRUGS (6)
  1. EFFEXOR [Suspect]
     Indication: DEPRESSION
     Dosage: UNKNOWN
     Route: 048
     Dates: start: 20050101
  2. LARGACTIL [Interacting]
     Dosage: UNKNOWN
     Route: 048
     Dates: start: 20050101
  3. NORVIR [Interacting]
     Indication: HIV INFECTION
     Route: 048
     Dates: start: 20070805
  4. ANTIVIRALS FOR SYSTEMIC USE [Suspect]
     Indication: HIV INFECTION
     Route: 048
     Dates: start: 20070805, end: 20071112
  5. ANTIVIRALS FOR SYSTEMIC USE [Suspect]
     Route: 048
     Dates: start: 20070805, end: 20071126
  6. ANTIVIRALS FOR SYSTEMIC USE [Interacting]
     Route: 048
     Dates: start: 20070805

REACTIONS (10)
  - ABDOMINAL PAIN [None]
  - ANTICHOLINERGIC SYNDROME [None]
  - ASTHENIA [None]
  - CONSTIPATION [None]
  - DEPRESSED MOOD [None]
  - DRY SKIN [None]
  - ESCHERICHIA URINARY TRACT INFECTION [None]
  - FATIGUE [None]
  - POTENTIATING DRUG INTERACTION [None]
  - WEIGHT INCREASED [None]
